FAERS Safety Report 18051643 (Version 1)
Quarter: 2020Q3

REPORT INFORMATION
  Report Type: Spontaneous
  Country: US (occurrence: US)
  Receive Date: 20200721
  Receipt Date: 20200721
  Transmission Date: 20201103
  Serious: No
  Sender: FDA-Public Use
  Company Number: US-CIPHER-2020-US-000219

PATIENT
  Age: 65 Year
  Sex: Female
  Weight: 95.26 kg

DRUGS (4)
  1. TRAMADOL HYDROCHLORIDE. [Suspect]
     Active Substance: TRAMADOL HYDROCHLORIDE
     Indication: HEADACHE
     Dosage: UNKNOWN DOSE
     Route: 065
  2. TADALAFIL. [Concomitant]
     Active Substance: TADALAFIL
  3. ORENITRAM [Concomitant]
     Active Substance: TREPROSTINIL
  4. AMLODIPINE [Concomitant]
     Active Substance: AMLODIPINE BESYLATE

REACTIONS (1)
  - Drug ineffective [Unknown]
